FAERS Safety Report 8060929-2 (Version None)
Quarter: 2012Q1

REPORT INFORMATION
  Report Type: 
  Country: None (occurrence: None)
  Receive Date: 20120120
  Receipt Date: 20110330
  Transmission Date: 20120608
  Serious: No
  Sender: FDA-Public Use
  Company Number: US-ALLERGAN-1104481US

PATIENT
  Age: 52 Year
  Sex: Female

DRUGS (3)
  1. RESTASIS [Suspect]
     Indication: DRY EYE
     Dosage: 1 GTT, BID
     Route: 061
     Dates: start: 20110324
  2. NATURAL TEARS [Concomitant]
  3. SYSTANE BALANCE [Concomitant]

REACTIONS (3)
  - OCULAR HYPERAEMIA [None]
  - EYE PAIN [None]
  - EYELID OEDEMA [None]
